FAERS Safety Report 24837888 (Version 1)
Quarter: 2025Q1

REPORT INFORMATION
  Report Type: Report from Study
  Country: CA (occurrence: CA)
  Receive Date: 20250113
  Receipt Date: 20250113
  Transmission Date: 20250408
  Serious: Yes (Other)
  Sender: SANDOZ
  Company Number: CA-002147023-NVSC2022CA113537

PATIENT
  Age: 74 Year
  Sex: Female

DRUGS (3)
  1. HYRIMOZ [Suspect]
     Active Substance: ADALIMUMAB-ADAZ
     Indication: Psoriatic arthropathy
     Dosage: 40 MG, QW
     Route: 058
     Dates: start: 20220215
  2. AMITRIPTYLINE [Concomitant]
     Active Substance: AMITRIPTYLINE
     Indication: Product used for unknown indication
     Route: 065
  3. GABAPENTIN [Concomitant]
     Active Substance: GABAPENTIN
     Indication: Product used for unknown indication
     Route: 065

REACTIONS (11)
  - Abdominal adhesions [Unknown]
  - Hysterectomy [Unknown]
  - Cholecystectomy [Unknown]
  - Malaise [Unknown]
  - Peripheral swelling [Unknown]
  - Erythema [Unknown]
  - Product use issue [Unknown]
  - Product dose omission issue [Unknown]
  - Off label use [Unknown]
  - Drug dose omission by device [Unknown]
  - Drug ineffective [Unknown]

NARRATIVE: CASE EVENT DATE: 20240901
